FAERS Safety Report 7054734-3 (Version None)
Quarter: 2010Q4

REPORT INFORMATION
  Report Type: 
  Country: None (occurrence: None)
  Receive Date: 20101018
  Receipt Date: 20100830
  Transmission Date: 20110411
  Serious: Yes (Other)
  Sender: FDA-Public Use
  Company Number: 2010-00010

PATIENT
  Age: 59 Year
  Sex: Female
  Weight: 90.7194 kg

DRUGS (2)
  1. NTG AGE SHIELD SUNBLOCK SPF45 [Suspect]
     Indication: PROPHYLAXIS AGAINST SOLAR RADIATION
     Dosage: TOPICAL
     Route: 061
     Dates: start: 20100522, end: 20100522
  2. NORVASC 360 MG [Concomitant]

REACTIONS (5)
  - CHOKING [None]
  - FEELING ABNORMAL [None]
  - OESOPHAGEAL STENOSIS [None]
  - PHARYNGEAL OEDEMA [None]
  - SKIN DISORDER [None]
